FAERS Safety Report 8085439 (Version 6)
Quarter: 2014Q3

REPORT INFORMATION
  Report Type: Spontaneous
  Country: US (occurrence: US)
  Receive Date: 20110811
  Receipt Date: 20140703
  Transmission Date: 20150326
  Serious: Yes (Hospitalization, Other)
  Sender: FDA-Public Use
  Company Number: US-BAYER-2011-069422

PATIENT
  Age: 45 Year
  Sex: Female

DRUGS (5)
  1. MIRENA [Suspect]
     Active Substance: LEVONORGESTREL
     Indication: MENORRHAGIA
  2. DEPO-PROVERA [Concomitant]
     Active Substance: MEDROXYPROGESTERONE ACETATE
     Indication: CONTRACEPTION
     Dosage: UNK
     Dates: start: 200501, end: 2010
  3. MIRENA [Suspect]
     Active Substance: LEVONORGESTREL
     Indication: CONTRACEPTION
  4. DEPO-PROVERA [Concomitant]
     Active Substance: MEDROXYPROGESTERONE ACETATE
     Indication: CONTRACEPTION
     Dosage: UNK
     Dates: start: 20010914, end: 20090324
  5. MIRENA [Suspect]
     Active Substance: LEVONORGESTREL
     Indication: MENSTRUAL CYCLE MANAGEMENT
     Dosage: 20 MCG/24HR, CONT
     Route: 015
     Dates: start: 20090407, end: 20100813

REACTIONS (16)
  - Vaginal haemorrhage [None]
  - Depression [None]
  - Depressed mood [None]
  - Procedural pain [Recovered/Resolved]
  - Internal injury [None]
  - Device dislocation [None]
  - Post procedural haemorrhage [None]
  - Anxiety [None]
  - Mental disorder [None]
  - Injury [None]
  - Fear [None]
  - Abdominal pain [None]
  - Pelvic pain [None]
  - Emotional distress [None]
  - Medical device discomfort [None]
  - Uterine perforation [None]

NARRATIVE: CASE EVENT DATE: 20090407
